FAERS Safety Report 13898010 (Version 4)
Quarter: 2017Q3

REPORT INFORMATION
  Report Type: Spontaneous
  Country: BR (occurrence: BR)
  Receive Date: 20170823
  Receipt Date: 20170911
  Transmission Date: 20171127
  Serious: Yes (Hospitalization, Other)
  Sender: FDA-Public Use
  Company Number: BR-PFIZER INC-2011010812

PATIENT
  Age: 71 Year
  Sex: Male

DRUGS (9)
  1. VIAGRA [Suspect]
     Active Substance: SILDENAFIL CITRATE
     Dosage: 100 MG, DAILY
  2. CIALIS [Suspect]
     Active Substance: TADALAFIL
     Indication: ERECTILE DYSFUNCTION
     Dosage: 5 MG, DAILY
     Dates: start: 2015
  3. ENALAPRIL [Concomitant]
     Active Substance: ENALAPRIL
     Dosage: UNK, UNK
     Dates: start: 2001
  4. VIAGRA [Suspect]
     Active Substance: SILDENAFIL CITRATE
     Indication: ERECTILE DYSFUNCTION
     Dosage: 50 MG, DAILY
  5. VIAGRA [Suspect]
     Active Substance: SILDENAFIL CITRATE
     Indication: LOSS OF LIBIDO
     Dosage: 20 MG, DAILY
     Dates: start: 20050101, end: 20170321
  6. A-A-S [Concomitant]
     Active Substance: ASPIRIN
     Dosage: UNK
     Dates: start: 2007
  7. HYDROCHLOROTHIAZIDE. [Concomitant]
     Active Substance: HYDROCHLOROTHIAZIDE
     Dosage: UNK
     Dates: start: 2001
  8. CIALIS [Suspect]
     Active Substance: TADALAFIL
     Indication: ERECTILE DYSFUNCTION
  9. VIVACOR (CARVEDILOL) [Concomitant]
     Dosage: UNK
     Dates: start: 2007

REACTIONS (9)
  - Myocardial ischaemia [Recovered/Resolved]
  - Prostatic specific antigen increased [Recovered/Resolved]
  - Alopecia [Unknown]
  - Angina unstable [Recovered/Resolved]
  - Prostate cancer [Recovered/Resolved]
  - Bone cancer [Recovered/Resolved]
  - Arterial occlusive disease [Recovered/Resolved]
  - Hypovitaminosis [Recovered/Resolved]
  - Drug effect incomplete [Recovered/Resolved]

NARRATIVE: CASE EVENT DATE: 2012
